FAERS Safety Report 17589538 (Version 2)
Quarter: 2021Q2

REPORT INFORMATION
  Report Type: Spontaneous
  Country: US (occurrence: US)
  Receive Date: 20200327
  Receipt Date: 20210413
  Transmission Date: 20210716
  Serious: No
  Sender: FDA-Public Use
  Company Number: US-ALLERGAN-1922494US

PATIENT
  Age: 52 Year
  Sex: Female
  Weight: 58.96 kg

DRUGS (6)
  1. LUMIGAN [Suspect]
     Active Substance: BIMATOPROST
     Dosage: 2 GTT, QHS
     Route: 047
  2. HORMONE REPLACEMENT ESTROGEN, ESTRADIOL AND PROGESTERONE [Concomitant]
     Dosage: UNK
  3. LUMIGAN [Suspect]
     Active Substance: BIMATOPROST
     Indication: PIGMENTARY GLAUCOMA
     Dosage: 2 GTT, QHS
     Route: 047
     Dates: start: 20190523
  4. TRETINOIN. [Concomitant]
     Active Substance: TRETINOIN
     Dosage: UNK
     Route: 061
  5. LUMIGAN [Suspect]
     Active Substance: BIMATOPROST
     Dosage: 2 GTT, QHS
     Route: 047
  6. ALPHAGAN P [Concomitant]
     Active Substance: BRIMONIDINE TARTRATE
     Indication: PRODUCT USED FOR UNKNOWN INDICATION

REACTIONS (7)
  - Product delivery mechanism issue [Unknown]
  - Drug interaction [Unknown]
  - Headache [Recovered/Resolved]
  - Overdose [Unknown]
  - Off label use [Unknown]
  - Accidental exposure to product [Unknown]
  - Eye pain [Recovered/Resolved]

NARRATIVE: CASE EVENT DATE: 20190523
